FAERS Safety Report 5315346-2 (Version None)
Quarter: 2007Q2

REPORT INFORMATION
  Report Type: 
  Country: None (occurrence: None)
  Receive Date: 20070502
  Receipt Date: 20070427
  Transmission Date: 20071010
  Serious: Yes (Other)
  Sender: FDA-Public Use
  Company Number: US-PFIZER INC-2007034372

PATIENT
  Sex: Male

DRUGS (4)
  1. ZOLOFT [Suspect]
     Dosage: DAILY DOSE:75MG
  2. CHANTIX [Suspect]
     Indication: SMOKING CESSATION THERAPY
  3. ACETYLSALICYLIC ACID SRT [Concomitant]
  4. VITAMINS [Concomitant]

REACTIONS (4)
  - BACK INJURY [None]
  - BACK PAIN [None]
  - DYSPNOEA [None]
  - MYOCARDIAL INFARCTION [None]
